FAERS Safety Report 9148674 (Version 1)
Quarter: 2013Q1

REPORT INFORMATION
  Report Type: Spontaneous
  Country: US (occurrence: US)
  Receive Date: 20130308
  Receipt Date: 20130308
  Transmission Date: 20140127
  Serious: No
  Sender: FDA-Public Use
  Company Number: US-ENDO PHARMACEUTICALS INC.-OPCR20122041

PATIENT
  Sex: Male

DRUGS (3)
  1. OPANA ER 30MG [Suspect]
     Indication: PAIN
     Route: 048
     Dates: start: 2012
  2. OXYCODONE HCL [Suspect]
     Indication: PAIN
     Route: 048
  3. OPANA ER [Concomitant]
     Indication: PAIN
     Dosage: UNKNOWN
     Route: 048

REACTIONS (3)
  - Aortic valve incompetence [Not Recovered/Not Resolved]
  - Pallor [Not Recovered/Not Resolved]
  - Drug screen positive [Unknown]
